FAERS Safety Report 6385018-4 (Version None)
Quarter: 2009Q4

REPORT INFORMATION
  Report Type: 
  Country: None (occurrence: None)
  Receive Date: 20091002
  Receipt Date: 20090923
  Transmission Date: 20100525
  Serious: Yes (Hospitalization)
  Sender: FDA-Public Use
  Company Number: PHHO2007ES16183

PATIENT
  Sex: Male
  Weight: 81.2 kg

DRUGS (3)
  1. RAD 666 RAD+TAB [Suspect]
     Indication: RENAL TRANSPLANT
     Dosage: 3.50 MG
     Route: 048
     Dates: start: 20070907, end: 20071002
  2. MYFORTIC [Suspect]
     Indication: RENAL TRANSPLANT
     Dosage: 360 MG, BID
     Route: 048
     Dates: start: 20070907, end: 20071002
  3. MYFORTIC [Suspect]
     Dates: start: 20071007

REACTIONS (3)
  - BONE MARROW TOXICITY [None]
  - LEUKOPENIA [None]
  - NEUTROPENIA [None]
